FAERS Safety Report 8874606 (Version 1)
Quarter: 2012Q4

REPORT INFORMATION
  Report Type: 
  Country: FR (occurrence: FR)
  Receive Date: 20121031
  Receipt Date: 20121031
  Transmission Date: 20130627
  Serious: Yes (Other)
  Sender: FDA-Public Use
  Company Number: FR-BRISTOL-MYERS SQUIBB COMPANY-17064346

PATIENT
  Age: 64 Year
  Sex: Female

DRUGS (9)
  1. ONGLYZA TABS [Suspect]
     Indication: TYPE 2 DIABETES MELLITUS
     Route: 048
     Dates: end: 201210
  2. OLMESARTAN MEDOXOMIL/HYDROCHLOROTHIAZIDE [Interacting]
     Route: 048
     Dates: end: 201210
  3. ACEBUTOLOL [Concomitant]
  4. CRESTOR [Concomitant]
  5. KARDEGIC [Concomitant]
  6. NOCTAMIDE [Concomitant]
  7. ATARAX [Concomitant]
  8. INEXIUM [Concomitant]
  9. PAROXETINE [Concomitant]

REACTIONS (4)
  - Hypertriglyceridaemia [Unknown]
  - Hypercholesterolaemia [Unknown]
  - Gamma-glutamyltransferase increased [Unknown]
  - Drug interaction [Unknown]
